FAERS Safety Report 18579368 (Version 2)
Quarter: 2020Q4

REPORT INFORMATION
  Report Type: Spontaneous
  Country: US (occurrence: US)
  Receive Date: 20201204
  Receipt Date: 20201216
  Transmission Date: 20210114
  Serious: Yes (Other)
  Sender: FDA-Public Use
  Company Number: US-PFIZER INC-2020475659

PATIENT
  Age: 49 Year
  Sex: Female
  Weight: 58.97 kg

DRUGS (3)
  1. DUAVEE [Suspect]
     Active Substance: BAZEDOXIFENE ACETATE\ESTROGENS, CONJUGATED
     Dosage: 1 DF, DAILY  (UNKNOWN DOSE. ONE TABLET DAILY BY MOUTH.)
     Route: 048
     Dates: start: 2020
  2. DUAVEE [Suspect]
     Active Substance: BAZEDOXIFENE ACETATE\ESTROGENS, CONJUGATED
     Indication: MENOPAUSE
     Dosage: UNK
     Dates: start: 2015
  3. ZOLOFT [Concomitant]
     Active Substance: SERTRALINE HYDROCHLORIDE
     Indication: DEPRESSION
     Dosage: 100 MG, DAILY (100 MG DAILY.)
     Dates: start: 2016

REACTIONS (8)
  - Anxiety [Unknown]
  - Feeling abnormal [Not Recovered/Not Resolved]
  - Crying [Unknown]
  - Haemorrhage [Unknown]
  - Depression [Unknown]
  - Depressed mood [Unknown]
  - Anger [Unknown]
  - Irritability [Unknown]

NARRATIVE: CASE EVENT DATE: 202010
